FAERS Safety Report 4396554-4 (Version None)
Quarter: 2004Q2

REPORT INFORMATION
  Report Type: 
  Country: None (occurrence: None)
  Receive Date: 20040621
  Receipt Date: 20020618
  Transmission Date: 20050107
  Serious: Yes (Hospitalization, Other)
  Sender: FDA-Public Use
  Company Number: USA-2002-0001439

PATIENT
  Age: 30 Year
  Sex: Male
  Weight: 68 kg

DRUGS (18)
  1. OXYCONTIN [Suspect]
     Indication: PAIN
     Dosage: 20 MG, BID, ORAL
     Route: 048
     Dates: start: 20000301
  2. OXYCONTIN [Suspect]
     Indication: PAIN
     Dosage: 40 MG, TID, ORAL
     Route: 048
     Dates: start: 20000301, end: 20011130
  3. OXYCONTIN [Suspect]
     Indication: PAIN
     Dosage: 80 MG, BID, ORAL
     Route: 048
     Dates: start: 20010806, end: 20020226
  4. XANAX [Suspect]
     Dosage: ORAL
     Route: 048
  5. SOMA [Suspect]
     Dosage: ORAL
     Route: 048
  6. AMBIEN [Concomitant]
  7. CELEBREX [Concomitant]
  8. ACETAMINOPHEN AND HYDROCODONE BITARTRATE [Concomitant]
  9. NORCO [Concomitant]
  10. ROBAXIN [Concomitant]
  11. STERAPRED DS [Concomitant]
  12. TRAMADOL HCL [Concomitant]
  13. VIOXX [Concomitant]
  14. VICOPROFEN [Concomitant]
  15. ZANAFLEX [Concomitant]
  16. ZOLOFT [Concomitant]
  17. DIAZEPAM [Concomitant]
  18. ASPIRIN [Concomitant]

REACTIONS (35)
  - ACCIDENT [None]
  - ARTHRALGIA [None]
  - ARTHRITIS INFECTIVE [None]
  - ASTHENIA [None]
  - BACK PAIN [None]
  - CONFUSIONAL STATE [None]
  - CONSTIPATION [None]
  - CONTUSION [None]
  - DECREASED APPETITE [None]
  - DEPRESSION [None]
  - DEPRESSION SUICIDAL [None]
  - DIARRHOEA [None]
  - DIPLOPIA [None]
  - DIZZINESS [None]
  - DRUG ABUSER [None]
  - DRUG DEPENDENCE [None]
  - DRUG INEFFECTIVE [None]
  - DRUG WITHDRAWAL SYNDROME [None]
  - EMOTIONAL DISTRESS [None]
  - FALL [None]
  - HEADACHE [None]
  - HYPERHIDROSIS [None]
  - HYPOAESTHESIA [None]
  - INSOMNIA [None]
  - MALAISE [None]
  - MYALGIA [None]
  - NAUSEA [None]
  - PAIN [None]
  - PAIN IN EXTREMITY [None]
  - PARAESTHESIA [None]
  - SUICIDAL IDEATION [None]
  - TREMOR [None]
  - URINARY INCONTINENCE [None]
  - VOMITING [None]
  - WEIGHT DECREASED [None]
